FAERS Safety Report 5850258-7 (Version None)
Quarter: 2008Q3

REPORT INFORMATION
  Report Type: 
  Country: None (occurrence: None)
  Receive Date: 20080819
  Receipt Date: 20080806
  Transmission Date: 20090109
  Serious: Yes (Hospitalization, Other)
  Sender: FDA-Public Use
  Company Number: PHHY2008JP14998

PATIENT
  Sex: Male

DRUGS (2)
  1. ZOMETA [Suspect]
     Indication: METASTASES TO BONE
     Dosage: 4 MG, UNK
     Route: 042
     Dates: start: 20080627
  2. ZOMETA [Suspect]
     Dosage: UNK
     Dates: start: 20080724

REACTIONS (5)
  - HAEMATURIA [None]
  - PYREXIA [None]
  - SCROTAL SWELLING [None]
  - TESTICULAR ATROPHY [None]
  - URINARY TRACT INFECTION [None]
